FAERS Safety Report 21937321 (Version 1)
Quarter: 2023Q1

REPORT INFORMATION
  Report Type: Spontaneous
  Country: US (occurrence: None)
  Receive Date: 20230131
  Receipt Date: 20230131
  Transmission Date: 20230417
  Serious: No
  Sender: FDA-Public Use
  Company Number: None

PATIENT
  Age: 71 Year
  Sex: Female

DRUGS (4)
  1. FORTEO [Suspect]
     Active Substance: TERIPARATIDE
     Indication: Osteoporosis
     Dosage: 20MCG DAILY SUBCUTANEOUS
     Route: 058
     Dates: start: 20221009
  2. CALCIUM [Concomitant]
     Active Substance: CALCIUM
  3. Ferrous Sulgate [Concomitant]
  4. VITAMIN D [Concomitant]
     Active Substance: VITAMIN D NOS

REACTIONS (1)
  - Urine abnormality [None]

NARRATIVE: CASE EVENT DATE: 20221231
